FAERS Safety Report 4858381-0 (Version None)
Quarter: 2005Q4

REPORT INFORMATION
  Report Type: 
  Country: None (occurrence: None)
  Receive Date: 20051219
  Receipt Date: 20050802
  Transmission Date: 20060501
  Serious: No
  Sender: FDA-Public Use
  Company Number: US-GLAXOSMITHKLINE-A0568587A

PATIENT
  Age: 52 Year
  Sex: Male

DRUGS (8)
  1. NICODERM CQ [Suspect]
  2. INDERAL LA [Concomitant]
  3. ALDACTONE [Concomitant]
  4. LIPITOR [Concomitant]
  5. LOPID [Concomitant]
  6. NEURONTIN [Concomitant]
  7. VALIUM [Concomitant]
  8. LORTAB [Concomitant]

REACTIONS (2)
  - HEADACHE [None]
  - NAUSEA [None]
